FAERS Safety Report 18140784 (Version 2)
Quarter: 2020Q3

REPORT INFORMATION
  Report Type: Spontaneous
  Country: US (occurrence: US)
  Receive Date: 20200812
  Receipt Date: 20200813
  Transmission Date: 20201103
  Serious: No
  Sender: FDA-Public Use
  Company Number: US-PFIZER INC-2020304980

PATIENT
  Age: 76 Year
  Sex: Female

DRUGS (1)
  1. IBRANCE [Suspect]
     Active Substance: PALBOCICLIB
     Dosage: UNK (IBRANCE 125 MG TAB)
     Dates: start: 20200802

REACTIONS (4)
  - Diarrhoea [Unknown]
  - Dyspnoea [Unknown]
  - Urinary tract infection [Unknown]
  - Eye pain [Unknown]
